FAERS Safety Report 11379429 (Version 1)
Quarter: 2015Q3

REPORT INFORMATION
  Report Type: Report from Study
  Country: US (occurrence: US)
  Receive Date: 20150814
  Receipt Date: 20150814
  Transmission Date: 20151125
  Serious: Yes (Other)
  Sender: FDA-Public Use
  Company Number: US-AMGEN-USASP2015081755

PATIENT
  Age: 64 Year
  Sex: Male

DRUGS (4)
  1. TETANUS TOXOID [Suspect]
     Active Substance: CLOSTRIDIUM TETANI TOXOID ANTIGEN (FORMALDEHYDE INACTIVATED)
     Indication: RIB FRACTURE
  2. ENBREL [Suspect]
     Active Substance: ETANERCEPT
     Indication: RHEUMATOID ARTHRITIS
     Dosage: EVERY SUNDAY
     Route: 065
  3. TETANUS TOXOID [Suspect]
     Active Substance: CLOSTRIDIUM TETANI TOXOID ANTIGEN (FORMALDEHYDE INACTIVATED)
     Indication: TRAUMATIC HAEMORRHAGE
     Dosage: UNK
     Route: 065
  4. TETANUS TOXOID [Suspect]
     Active Substance: CLOSTRIDIUM TETANI TOXOID ANTIGEN (FORMALDEHYDE INACTIVATED)
     Indication: LIMB INJURY

REACTIONS (7)
  - Pain in extremity [Unknown]
  - Peripheral swelling [Unknown]
  - Rib fracture [Unknown]
  - Limb injury [Unknown]
  - Fall [Unknown]
  - Traumatic haemorrhage [Unknown]
  - Injection site swelling [Unknown]
